FAERS Safety Report 20909206 (Version 2)
Quarter: 2022Q3

REPORT INFORMATION
  Report Type: Spontaneous
  Country: JP (occurrence: JP)
  Receive Date: 20220603
  Receipt Date: 20220704
  Transmission Date: 20221027
  Serious: Yes (Other)
  Sender: FDA-Public Use
  Company Number: JP-BRISTOL-MYERS SQUIBB COMPANY-2022-052085

PATIENT
  Age: 78 Year
  Sex: Female
  Weight: 44 kg

DRUGS (7)
  1. REVLIMID [Suspect]
     Active Substance: LENALIDOMIDE
     Indication: Plasma cell myeloma
     Dates: start: 20200214, end: 20211201
  2. LENADEX [Suspect]
     Active Substance: DEXAMETHASONE ACETATE
     Indication: Prophylaxis
     Route: 065
  3. ASPIRIN [Concomitant]
     Active Substance: ASPIRIN
     Indication: Prophylaxis
     Route: 065
     Dates: end: 20220301
  4. CALONAL [Concomitant]
     Active Substance: ACETAMINOPHEN
     Indication: Product used for unknown indication
     Route: 065
     Dates: end: 20211109
  5. FUROSEMIDE [Concomitant]
     Active Substance: FUROSEMIDE
     Indication: Immunoglobulins decreased
     Route: 065
     Dates: end: 20220125
  6. IBUDILAST [Concomitant]
     Active Substance: IBUDILAST
     Indication: Trigeminal neuralgia
     Route: 048
  7. CARBAMAZEPINE [Concomitant]
     Active Substance: CARBAMAZEPINE
     Indication: Trigeminal neuralgia
     Route: 048

REACTIONS (5)
  - Progressive multifocal leukoencephalopathy [Unknown]
  - Oedema [Recovering/Resolving]
  - Fall [Unknown]
  - Gait disturbance [Unknown]
  - Wrist fracture [Unknown]

NARRATIVE: CASE EVENT DATE: 20210901
